FAERS Safety Report 8404100-0 (Version None)
Quarter: 2012Q2

REPORT INFORMATION
  Report Type: 
  Country: None (occurrence: None)
  Receive Date: 20120601
  Receipt Date: 20120530
  Transmission Date: 20120825
  Serious: Yes (Death, Other)
  Sender: FDA-Public Use
  Company Number: PHHY2012JP046657

PATIENT
  Age: 65 Year
  Sex: Female

DRUGS (6)
  1. PREDNISOLONE [Suspect]
     Dosage: 0.2 MG/KG, QD
     Route: 048
  2. PROSTAGLANDIN E1 [Concomitant]
  3. TACROLIMUS [Suspect]
     Indication: IMMUNOSUPPRESSION
  4. MYCOPHENOLATE MOFETIL [Suspect]
  5. PREDNISOLONE [Suspect]
     Dosage: 0.3 MG/KG, QD
     Route: 048
  6. METHYLPREDNISOLONE [Suspect]
     Indication: IMMUNOSUPPRESSION
     Dosage: 1-2 MG/KG, QD
     Route: 042

REACTIONS (6)
  - DIARRHOEA [None]
  - INTESTINAL PERFORATION [None]
  - CYTOMEGALOVIRUS INFECTION [None]
  - PANCYTOPENIA [None]
  - ABDOMINAL PAIN [None]
  - HISTIOCYTOSIS HAEMATOPHAGIC [None]
